FAERS Safety Report 9972189 (Version 1)
Quarter: 2014Q1

REPORT INFORMATION
  Report Type: Spontaneous
  Country: US (occurrence: None)
  Receive Date: 20140305
  Receipt Date: 20140305
  Transmission Date: 20141002
  Serious: Yes (Disabling)
  Sender: FDA-Public Use
  Company Number: None

PATIENT
  Age: 55 Year
  Sex: Female
  Weight: 81.65 kg

DRUGS (2)
  1. LIPITOR [Suspect]
     Indication: BLOOD CHOLESTEROL INCREASED
     Dosage: 1 PILL ONCE DAILY
     Route: 048
     Dates: start: 20111116, end: 20120112
  2. LIPITOR [Suspect]
     Indication: GLOMERULONEPHRITIS MEMBRANOPROLIFERATIVE
     Dosage: 1 PILL ONCE DAILY
     Route: 048
     Dates: start: 20111116, end: 20120112

REACTIONS (8)
  - Insomnia [None]
  - Muscle contractions involuntary [None]
  - Pain [None]
  - Gait disturbance [None]
  - Discomfort [None]
  - Dysstasia [None]
  - Hyperhidrosis [None]
  - Movement disorder [None]
